FAERS Safety Report 7177355-0 (Version None)
Quarter: 2010Q4

REPORT INFORMATION
  Report Type: 
  Country: None (occurrence: None)
  Receive Date: 20101216
  Receipt Date: 20101216
  Transmission Date: 20110411
  Serious: Yes (Other)
  Sender: FDA-Public Use
  Company Number: None

PATIENT
  Sex: Female

DRUGS (1)
  1. RECLAST [Suspect]
     Indication: BONE DISORDER
     Dosage: STILL WEAK AND PAIN
     Dates: start: 20101020, end: 20101208

REACTIONS (3)
  - BACK PAIN [None]
  - MUSCULAR WEAKNESS [None]
  - PAIN [None]
